FAERS Safety Report 17411046 (Version 1)
Quarter: 2020Q1

REPORT INFORMATION
  Report Type: Report from Study
  Country: US (occurrence: US)
  Receive Date: 20200212
  Receipt Date: 20200212
  Transmission Date: 20200409
  Serious: Yes (Hospitalization)
  Sender: FDA-Public Use
  Company Number: US-ACTELION-A-US2017-150814

PATIENT
  Age: 69 Year
  Sex: Male
  Weight: 79.82 kg

DRUGS (12)
  1. ASPIRIN. [Concomitant]
     Active Substance: ASPIRIN
  2. POTASSIUM CHLORIDE. [Concomitant]
     Active Substance: POTASSIUM CHLORIDE
  3. COENZYME Q10 [Concomitant]
     Active Substance: UBIDECARENONE
  4. XARELTO [Concomitant]
     Active Substance: RIVAROXABAN
  5. FISH OIL [Concomitant]
     Active Substance: FISH OIL
  6. ALBUTEROL. [Concomitant]
     Active Substance: ALBUTEROL
  7. OMEPRAZOLE. [Concomitant]
     Active Substance: OMEPRAZOLE
  8. IRON [Concomitant]
     Active Substance: IRON
  9. ADEMPAS [Concomitant]
     Active Substance: RIOCIGUAT
  10. FUROSEMIDE. [Concomitant]
     Active Substance: FUROSEMIDE
  11. ATORVASTATIN [Concomitant]
     Active Substance: ATORVASTATIN
  12. OPSUMIT [Suspect]
     Active Substance: MACITENTAN
     Indication: PULMONARY ARTERIAL HYPERTENSION
     Dosage: 10 MG, QD
     Route: 048
     Dates: start: 20170309

REACTIONS (10)
  - Blood potassium decreased [Unknown]
  - Bronchitis [Unknown]
  - Decreased appetite [Unknown]
  - Nasopharyngitis [Unknown]
  - Product dose omission [Unknown]
  - Malaise [Unknown]
  - Localised infection [Not Recovered/Not Resolved]
  - Limb injury [Unknown]
  - Respiration abnormal [Unknown]
  - Fatigue [Not Recovered/Not Resolved]

NARRATIVE: CASE EVENT DATE: 20190502
